FAERS Safety Report 15763182 (Version 2)
Quarter: 2019Q1

REPORT INFORMATION
  Report Type: Report from Study
  Country: None (occurrence: CA)
  Receive Date: 20181226
  Receipt Date: 20190120
  Transmission Date: 20190417
  Serious: Yes (Other)
  Sender: FDA-Public Use
  Company Number: CA-ABBVIE-18K-028-2603379-00

PATIENT
  Sex: Female
  Weight: 133 kg

DRUGS (1)
  1. HUMIRA [Suspect]
     Active Substance: ADALIMUMAB
     Indication: CROHN^S DISEASE
     Route: 058
     Dates: start: 20120425

REACTIONS (9)
  - Subcutaneous abscess [Not Recovered/Not Resolved]
  - Haemorrhoids thrombosed [Unknown]
  - Asthenia [Not Recovered/Not Resolved]
  - Arthralgia [Not Recovered/Not Resolved]
  - Groin abscess [Not Recovered/Not Resolved]
  - Diarrhoea [Not Recovered/Not Resolved]
  - Haemorrhoid infection [Not Recovered/Not Resolved]
  - Cyst [Not Recovered/Not Resolved]
  - Gastrointestinal disorder [Unknown]
